FAERS Safety Report 12418615 (Version 1)
Quarter: 2016Q2

REPORT INFORMATION
  Report Type: Spontaneous
  Country: US (occurrence: None)
  Receive Date: 20160527
  Receipt Date: 20160527
  Transmission Date: 20160815
  Serious: Yes (Hospitalization)
  Sender: FDA-Public Use
  Company Number: None

PATIENT
  Age: 83 Year
  Sex: Male
  Weight: 105.24 kg

DRUGS (13)
  1. TRAMADOL. [Concomitant]
     Active Substance: TRAMADOL
  2. ENALAPRIL [Concomitant]
     Active Substance: ENALAPRIL
  3. POTASSIUM CHLORIDE. [Concomitant]
     Active Substance: POTASSIUM CHLORIDE
  4. FISH OIL [Concomitant]
     Active Substance: FISH OIL
  5. DILTIAZEM [Concomitant]
     Active Substance: DILTIAZEM
  6. ASPIRIN. [Concomitant]
     Active Substance: ASPIRIN
  7. GINGER. [Concomitant]
     Active Substance: GINGER
  8. HARVONI [Suspect]
     Active Substance: LEDIPASVIR\SOFOSBUVIR
     Indication: HEPATITIS C
     Dosage: 90/400 1X DAILY ORAL
     Route: 048
     Dates: start: 20150624, end: 20151209
  9. FUROSEMIDE. [Concomitant]
     Active Substance: FUROSEMIDE
  10. ANTIHISTAMINES [Concomitant]
     Active Substance: ANTIHISTAMINES NOS
  11. MULTIVITAMIN [Concomitant]
     Active Substance: VITAMINS
  12. NUTRA LIFE MILK THISTLE [Concomitant]
  13. FINASTERIDE. [Concomitant]
     Active Substance: FINASTERIDE

REACTIONS (7)
  - Bronchitis [None]
  - Abdominal pain [None]
  - Cellulitis [None]
  - Scrotal oedema [None]
  - Abdominal distension [None]
  - Penile oedema [None]
  - Dizziness [None]

NARRATIVE: CASE EVENT DATE: 20160117
